FAERS Safety Report 18512622 (Version 1)
Quarter: 2020Q4

REPORT INFORMATION
  Report Type: Other
  Country: US (occurrence: US)
  Receive Date: 20201117
  Receipt Date: 20201117
  Transmission Date: 20210114
  Serious: No
  Sender: FDA-Public Use
  Company Number: US-XSPIRE PHARMA, LLC-2096026

PATIENT
  Age: 27 Year
  Sex: Female
  Weight: 56.82 kg

DRUGS (1)
  1. DEXAMETHASONE. [Suspect]
     Active Substance: DEXAMETHASONE
     Indication: PROCEDURAL NAUSEA
     Route: 040

REACTIONS (1)
  - Adrenal insufficiency [Recovered/Resolved]
